FAERS Safety Report 15606134 (Version 1)
Quarter: 2018Q4

REPORT INFORMATION
  Report Type: Spontaneous
  Country: CA (occurrence: US)
  Receive Date: 20181106
  Receipt Date: 20181106
  Transmission Date: 20190205
  Serious: Yes (Hospitalization)
  Sender: FDA-Public Use
  Company Number: None

PATIENT
  Sex: Female
  Weight: 30.9 kg

DRUGS (8)
  1. CYTARABINE. [Concomitant]
     Active Substance: CYTARABINE
     Dates: end: 20181019
  2. DEXAMETHASONE. [Concomitant]
     Active Substance: DEXAMETHASONE
  3. APREPITANT. [Concomitant]
     Active Substance: APREPITANT
  4. ERWINIA ASPARAGINASE [Concomitant]
     Active Substance: ASPARAGINASE ERWINIA CHRYSANTHEMI
  5. DEXAMETHASONE. [Suspect]
     Active Substance: DEXAMETHASONE
     Dates: end: 20181016
  6. METHOTREXATE. [Suspect]
     Active Substance: METHOTREXATE
     Dates: end: 20181011
  7. VINCRISTINE SULFATE. [Suspect]
     Active Substance: VINCRISTINE SULFATE
     Dates: end: 20181012
  8. ATIVAN [Concomitant]
     Active Substance: LORAZEPAM

REACTIONS (3)
  - Septic shock [None]
  - Febrile neutropenia [None]
  - Adrenal insufficiency [None]

NARRATIVE: CASE EVENT DATE: 20181027
